FAERS Safety Report 14462993 (Version 1)
Quarter: 2018Q1

REPORT INFORMATION
  Report Type: Spontaneous
  Country: US (occurrence: US)
  Receive Date: 20180130
  Receipt Date: 20180130
  Transmission Date: 20180509
  Serious: No
  Sender: FDA-Public Use
  Company Number: US-MIST-TIR-2018-0030

PATIENT
  Age: 37 Year
  Sex: Female
  Weight: 49.94 kg

DRUGS (4)
  1. TRIIODOTHYRONINE (T3) [Concomitant]
     Indication: PRODUCT USED FOR UNKNOWN INDICATION
     Dosage: 5MCG TWICE DAILY
  2. FIBER SUPPLEMENT [Suspect]
     Active Substance: DIETARY SUPPLEMENT
     Indication: PRODUCT USED FOR UNKNOWN INDICATION
     Dosage: TWICE DAILY, A TOTAL OF 26G DAILY
     Dates: start: 2017
  3. TIROSINT [Suspect]
     Active Substance: LEVOTHYROXINE SODIUM
     Indication: AUTOIMMUNE THYROIDITIS
     Dosage: 125MCG DAILY
     Route: 048
     Dates: start: 201712
  4. TIROSINT [Suspect]
     Active Substance: LEVOTHYROXINE SODIUM
     Indication: AUTOIMMUNE THYROIDITIS
     Dosage: 112MCG DAILY
     Route: 048
     Dates: start: 201708, end: 201712

REACTIONS (4)
  - Fatigue [Unknown]
  - Thyroid function test abnormal [Unknown]
  - Feeling abnormal [Unknown]
  - Hypothyroidism [Not Recovered/Not Resolved]

NARRATIVE: CASE EVENT DATE: 2017
